FAERS Safety Report 23946867 (Version 2)
Quarter: 2024Q2

REPORT INFORMATION
  Report Type: Report from Study
  Country: US (occurrence: US)
  Receive Date: 20240606
  Receipt Date: 20240612
  Transmission Date: 20240715
  Serious: Yes (Other)
  Sender: FDA-Public Use
  Company Number: US-ABBVIE-5783629

PATIENT
  Sex: Female

DRUGS (4)
  1. SKYRIZI [Suspect]
     Active Substance: RISANKIZUMAB-RZAA
     Indication: Psoriasis
     Route: 058
     Dates: start: 202210, end: 20240604
  2. SKYRIZI [Suspect]
     Active Substance: RISANKIZUMAB-RZAA
     Indication: Psoriatic arthropathy
     Dosage: LAST ADMINISTRATION DATE:2022
     Route: 058
     Dates: start: 20220901
  3. METHOTREXATE [Concomitant]
     Active Substance: METHOTREXATE
     Indication: Product used for unknown indication
  4. ENBREL [Suspect]
     Active Substance: BENZYL ALCOHOL\ETANERCEPT
     Indication: Product used for unknown indication
     Route: 065

REACTIONS (10)
  - Tonsillectomy [Unknown]
  - Disability [Not Recovered/Not Resolved]
  - Drug ineffective [Unknown]
  - Gastrooesophageal reflux disease [Unknown]
  - Irritable bowel syndrome [Unknown]
  - Osteoarthritis [Unknown]
  - Arthropathy [Unknown]
  - Gastric perforation [Unknown]
  - Immune system disorder [Not Recovered/Not Resolved]
  - Psoriatic arthropathy [Not Recovered/Not Resolved]
